FAERS Safety Report 4312781-6 (Version None)
Quarter: 2004Q1

REPORT INFORMATION
  Report Type: 
  Country: None (occurrence: None)
  Receive Date: 20040304
  Receipt Date: 20040224
  Transmission Date: 20041129
  Serious: Yes (Other)
  Sender: FDA-Public Use
  Company Number: FR-JNJFOC-20040205765

PATIENT
  Age: 66 Year
  Sex: Female
  Weight: 62 kg

DRUGS (11)
  1. REMICADE [Suspect]
     Indication: RHEUMATOID ARTHRITIS
     Dosage: 200 MG, INTRAVENOUS
     Route: 042
     Dates: start: 20020411, end: 20030418
  2. TROLOVOL (PENICILLAMINE) [Concomitant]
  3. METHOTREXATE [Concomitant]
  4. CELEBREX [Concomitant]
  5. FOLIC ACID [Concomitant]
  6. DISOPYRAMIDE [Concomitant]
  7. ASPEGIC 1000 [Concomitant]
  8. AMLODIPINE BESYLATE [Concomitant]
  9. PRAVASTATIN SODIUM [Concomitant]
  10. COVERSYL (PERINDOPRIL) [Concomitant]
  11. TENORMIN [Concomitant]

REACTIONS (6)
  - ARRHYTHMIA [None]
  - ATRIAL FIBRILLATION [None]
  - C-REACTIVE PROTEIN INCREASED [None]
  - RED BLOOD CELL SEDIMENTATION RATE INCREASED [None]
  - SKIN ULCER [None]
  - THROMBOCYTOPENIA [None]
